FAERS Safety Report 7421381-0 (Version None)
Quarter: 2011Q2

REPORT INFORMATION
  Report Type: 
  Country: None (occurrence: None)
  Receive Date: 20110407
  Receipt Date: 20110403
  Transmission Date: 20111010
  Serious: Yes (Other)
  Sender: FDA-Public Use
  Company Number: 2010SP000674

PATIENT
  Age: 28 Year
  Sex: Female
  Weight: 64 kg

DRUGS (2)
  1. NUVARING [Suspect]
     Indication: CONTRACEPTION
     Dosage: 1 DF; QM; VAG
     Route: 067
     Dates: start: 20081201
  2. EUTIROX [Concomitant]

REACTIONS (4)
  - METRORRHAGIA [None]
  - DEVICE DISLOCATION [None]
  - NEOPLASM MALIGNANT [None]
  - GENITAL DISCHARGE [None]
